FAERS Safety Report 10142684 (Version 2)
Quarter: 2014Q2

REPORT INFORMATION
  Report Type: Spontaneous
  Country: US (occurrence: None)
  Receive Date: 20140425
  Receipt Date: 20140507
  Transmission Date: 20141212
  Serious: Yes (Hospitalization)
  Sender: FDA-Public Use
  Company Number: AUR-APL-2014-04745

PATIENT
  Age: 65 Year
  Sex: Female
  Weight: 85 kg

DRUGS (13)
  1. SEMISODIUM VALPROATE [Suspect]
     Indication: HEADACHE
     Dosage: 500 MG (250 MG, 2 IN 1 D),ORAL
     Route: 048
  2. WARFARIN [Suspect]
     Indication: ANTICOAGULANT THERAPY
  3. AMITRIPTYLINE [Concomitant]
  4. IRBESARTAN [Concomitant]
  5. BOTULINUM TOXIN [Concomitant]
  6. CENTRUM [Concomitant]
  7. BISACODYL [Concomitant]
  8. DOCUSATE SODIUM [Concomitant]
  9. DIGOXIN [Concomitant]
  10. METFORMIN [Concomitant]
  11. CALCIUM + VITAMIN D3 [Concomitant]
  12. PAROXETINE [Concomitant]
  13. SIMVASTATIN [Concomitant]

REACTIONS (6)
  - International normalised ratio increased [None]
  - Fatigue [None]
  - Dyspnoea [None]
  - Cardiac failure [None]
  - Drug interaction [None]
  - Therapy cessation [None]
